FAERS Safety Report 11167410 (Version 1)
Quarter: 2015Q2

REPORT INFORMATION
  Report Type: Spontaneous
  Country: DE (occurrence: DE)
  Receive Date: 20150605
  Receipt Date: 20150605
  Transmission Date: 20150821
  Serious: Yes (Hospitalization)
  Sender: FDA-Public Use
  Company Number: DE-UCBSA-2015017223

PATIENT
  Age: 67 Year
  Sex: Female
  Weight: 60 kg

DRUGS (20)
  1. VIMPAT [Suspect]
     Active Substance: LACOSAMIDE
     Dosage: UNK
     Dates: start: 2015, end: 2015
  2. VIMPAT [Suspect]
     Active Substance: LACOSAMIDE
     Dosage: TAPERED DOWN
     Route: 048
     Dates: start: 2015, end: 2015
  3. ESLICARBAZEPINE ACETATE [Concomitant]
     Active Substance: ESLICARBAZEPINE ACETATE
     Dosage: TAPERED DOWN
  4. VIMPAT [Suspect]
     Active Substance: LACOSAMIDE
     Dosage: 400 MG DAILY
     Route: 048
     Dates: start: 201504, end: 2015
  5. LAMOTRIGINE. [Concomitant]
     Active Substance: LAMOTRIGINE
     Indication: SEIZURE
  6. ESLICARBAZEPINE ACETATE [Concomitant]
     Active Substance: ESLICARBAZEPINE ACETATE
     Indication: PRODUCT USED FOR UNKNOWN INDICATION
     Dosage: UNK
  7. ESLICARBAZEPINE ACETATE [Concomitant]
     Active Substance: ESLICARBAZEPINE ACETATE
     Dosage: REDUCED DOSE
  8. LEVETIRACETAM. [Suspect]
     Active Substance: LEVETIRACETAM
     Indication: SEIZURE
     Dosage: UNK
  9. ZONEGRAN [Concomitant]
     Active Substance: ZONISAMIDE
     Indication: PRODUCT USED FOR UNKNOWN INDICATION
     Dosage: 100 MG, UNK
  10. CARBAMAZEPINE. [Concomitant]
     Active Substance: CARBAMAZEPINE
     Indication: SEIZURE
     Dosage: UNKNOWN DOSE
  11. VALPROATE [Concomitant]
     Active Substance: VALPROATE SODIUM
     Indication: SEIZURE
  12. VIMPAT [Suspect]
     Active Substance: LACOSAMIDE
     Indication: PARTIAL SEIZURES
     Dosage: 400 MG DAILY
     Route: 048
     Dates: end: 20140722
  13. ZONEGRAN [Concomitant]
     Active Substance: ZONISAMIDE
     Dosage: TAPERED DOWN
  14. PHENYTOIN. [Concomitant]
     Active Substance: PHENYTOIN
     Indication: SEIZURE
  15. OXCARBAZEPINE. [Suspect]
     Active Substance: OXCARBAZEPINE
     Indication: SEIZURE
     Dosage: 1050 MG, ONCE DAILY (QD)
  16. PRIMIDONE. [Concomitant]
     Active Substance: PRIMIDONE
     Indication: SEIZURE
  17. APYDAN [Concomitant]
     Active Substance: OXCARBAZEPINE
     Indication: PARTIAL SEIZURES
     Dosage: 1050 MG, UNK
     Route: 048
     Dates: end: 20140725
  18. SULTHIAME [Concomitant]
     Active Substance: SULTHIAME
     Indication: SEIZURE
  19. VIMPAT [Suspect]
     Active Substance: LACOSAMIDE
     Dosage: 400 MG, ONCE DAILY (QD)
     Dates: start: 2015, end: 2015
  20. PREGABALIN. [Concomitant]
     Active Substance: PREGABALIN
     Indication: SEIZURE

REACTIONS (6)
  - Agitation [Unknown]
  - Mental disorder [Unknown]
  - Drug ineffective [Unknown]
  - Seizure [Unknown]
  - Tremor [Recovered/Resolved]
  - Off label use [Unknown]

NARRATIVE: CASE EVENT DATE: 20140501
